FAERS Safety Report 4617273-2 (Version None)
Quarter: 2005Q1

REPORT INFORMATION
  Report Type: 
  Country: None (occurrence: None)
  Receive Date: 20050323
  Receipt Date: 20020417
  Transmission Date: 20050727
  Serious: Yes (Death, Life-Threatening, Other)
  Sender: FDA-Public Use
  Company Number: US-MERCK-0204USA02050

PATIENT
  Age: 41 Year
  Sex: Male

DRUGS (24)
  1. VIOXX [Suspect]
     Indication: INFLAMMATION
     Route: 048
     Dates: start: 19990101, end: 20040101
  2. VIOXX [Suspect]
     Route: 048
     Dates: start: 20000101, end: 20020401
  3. VIOXX [Suspect]
     Route: 048
     Dates: start: 20020401
  4. VIOXX [Suspect]
     Indication: LOCAL SWELLING
     Route: 048
     Dates: start: 19990101, end: 20040101
  5. VIOXX [Suspect]
     Route: 048
     Dates: start: 20000101, end: 20020401
  6. VIOXX [Suspect]
     Route: 048
     Dates: start: 20020401
  7. LORTAB [Concomitant]
     Route: 065
  8. DURAGESIC-100 [Concomitant]
     Route: 065
  9. CELEBREX [Concomitant]
     Route: 065
  10. DEPAKOTE [Concomitant]
     Route: 065
  11. TRAZODONE HYDROCHLORIDE [Concomitant]
     Route: 065
  12. ADVIL [Concomitant]
     Route: 065
  13. [THERAPY UNSPECIFIED] [Concomitant]
     Route: 065
  14. ELAVIL [Concomitant]
     Route: 065
  15. PREVACID [Concomitant]
     Route: 065
  16. FLEXERIL [Concomitant]
     Route: 065
  17. VERAPAMIL HYDROCHLORIDE [Concomitant]
     Route: 065
  18. XANAX [Concomitant]
     Route: 065
  19. OXYCODONE [Concomitant]
     Route: 065
  20. CALCIUM (UNSPECIFIED) [Concomitant]
     Route: 065
  21. VITAMINS (UNSPECIFIED) [Concomitant]
     Route: 065
  22. ZANTAC [Concomitant]
     Route: 065
  23. [THERAPY UNSPECIFIED] [Concomitant]
     Route: 065
  24. [THERAPY UNSPECIFIED] [Concomitant]
     Route: 065

REACTIONS (6)
  - BRAIN NEOPLASM MALIGNANT [None]
  - DEATH [None]
  - GASTRIC CANCER [None]
  - INTERVERTEBRAL DISC DISORDER [None]
  - LUNG NEOPLASM MALIGNANT [None]
  - THERAPEUTIC RESPONSE DECREASED [None]
